FAERS Safety Report 5022011-8 (Version None)
Quarter: 2006Q2

REPORT INFORMATION
  Report Type: 
  Country: None (occurrence: None)
  Receive Date: 20060605
  Receipt Date: 20060523
  Transmission Date: 20061013
  Serious: Yes (Hospitalization)
  Sender: FDA-Public Use
  Company Number: 2006US001099

PATIENT
  Age: 54 Year
  Sex: Male

DRUGS (11)
  1. PROGRAF [Suspect]
     Indication: PROPHYLAXIS AGAINST TRANSPLANT REJECTION
     Dosage: 2 MG, BID, ORAL
     Route: 048
  2. MYCOPHENOLATE MOFETIL [Suspect]
     Indication: PROPHYLAXIS AGAINST TRANSPLANT REJECTION
     Dosage: 2000 MG, BID, ORAL
     Route: 048
  3. CORTICOSTEROID NOS (CORTICOSTEROID NOS) [Suspect]
     Indication: PROPHYLAXIS AGAINST TRANSPLANT REJECTION
  4. PRILOSEC [Concomitant]
  5. NEURONTIN [Concomitant]
  6. NEUTRA-PHOS (SODIUM PHOSPHATE DIBASIC, POTASSIUM PHOSPHATE DIBASIC, SO [Concomitant]
  7. K-DUR 10 [Concomitant]
  8. SENSIPAR (CINACALCET HYDROCHLORIDE) [Concomitant]
  9. MAGNESIUM OXIDE [Concomitant]
  10. LISINOPRIL (LISINOPRIL DIHYDRATE) [Concomitant]
  11. METOPROLOL TARTRATE [Concomitant]

REACTIONS (2)
  - ATRIAL FIBRILLATION [None]
  - CARDIAC FAILURE CONGESTIVE [None]
